FAERS Safety Report 10098146 (Version 1)
Quarter: 2014Q2

REPORT INFORMATION
  Report Type: Spontaneous
  Country: US (occurrence: US)
  Receive Date: 20140423
  Receipt Date: 20140423
  Transmission Date: 20141212
  Serious: Yes (Other)
  Sender: FDA-Public Use
  Company Number: US-ROCHE-1382194

PATIENT
  Sex: Female

DRUGS (4)
  1. VALCYTE [Suspect]
     Indication: PSEUDOLYMPHOMA
  2. CYCLOSPORIN [Concomitant]
     Indication: RENAL TRANSPLANT
  3. PREMARIN [Concomitant]
  4. VALCYTE [Suspect]
     Indication: RENAL TRANSPLANT
     Route: 065
     Dates: start: 2004

REACTIONS (1)
  - Abdominal neoplasm [Not Recovered/Not Resolved]
